FAERS Safety Report 20223708 (Version 1)
Quarter: 2021Q4

REPORT INFORMATION
  Report Type: Spontaneous
  Country: ES (occurrence: ES)
  Receive Date: 20211223
  Receipt Date: 20211223
  Transmission Date: 20220304
  Serious: Yes (Other)
  Sender: FDA-Public Use
  Company Number: None

PATIENT
  Age: 90 Year
  Sex: Male
  Weight: 85 kg

DRUGS (3)
  1. CAPTOPRIL [Suspect]
     Active Substance: CAPTOPRIL
     Indication: Hypertensive emergency
     Dosage: CAPTOPRIL (3871A)
     Route: 060
     Dates: start: 20211128, end: 20211128
  2. URAPIDIL [Concomitant]
     Active Substance: URAPIDIL
     Dosage: URAPIDIL (2385A)
     Dates: start: 20211127, end: 20211127
  3. AMLODIPINE BESYLATE [Concomitant]
     Active Substance: AMLODIPINE BESYLATE
     Dosage: AMLODIPINO (2503A)
     Dates: start: 20211128, end: 20211128

REACTIONS (2)
  - Angioedema [Recovering/Resolving]
  - Tongue oedema [Recovering/Resolving]

NARRATIVE: CASE EVENT DATE: 20211128
